FAERS Safety Report 18822093 (Version 1)
Quarter: 2021Q1

REPORT INFORMATION
  Report Type: Spontaneous
  Country: US (occurrence: US)
  Receive Date: 20210202
  Receipt Date: 20210202
  Transmission Date: 20210419
  Serious: Yes (Other)
  Sender: FDA-Public Use
  Company Number: US-ASTRAZENECA-2021A016607

PATIENT
  Sex: Female

DRUGS (3)
  1. FASLODEX [Suspect]
     Active Substance: FULVESTRANT
     Route: 030
  2. ACHIEVA [ACHILLEA MILLEFOLIUM} [Suspect]
     Active Substance: ACHILLEA MILLEFOLIUM
     Dosage: EVERY 28 DAYS
     Route: 065
  3. IBRANCE [Suspect]
     Active Substance: PALBOCICLIB
     Dosage: EVERY 28 DAYS
     Route: 048

REACTIONS (1)
  - Bone cancer [Unknown]
